FAERS Safety Report 15917715 (Version 1)
Quarter: 2019Q1

REPORT INFORMATION
  Report Type: Report from Study
  Country: CN (occurrence: CN)
  Receive Date: 20190205
  Receipt Date: 20190205
  Transmission Date: 20190417
  Serious: Yes (Other)
  Sender: FDA-Public Use
  Company Number: CN-ROCHE-2252714

PATIENT
  Sex: Female

DRUGS (6)
  1. CIMETIDINE [Concomitant]
     Active Substance: CIMETIDINE
     Route: 030
  2. CARBOPLATIN. [Suspect]
     Active Substance: CARBOPLATIN
     Indication: OVARIAN CANCER RECURRENT
     Dosage: AUC OF 5.0 - 7.5 PREPARED WITH 250 ML 5% GLUCOSE SOLUTION FOR OVER ONE HOUR OF INTRAVENOUS INFUSION
     Route: 041
  3. DEXAMETHASONE. [Concomitant]
     Active Substance: DEXAMETHASONE
     Route: 042
  4. PACLITAXEL. [Suspect]
     Active Substance: PACLITAXEL
     Indication: OVARIAN CANCER RECURRENT
     Dosage: 135 - 175 MG/M2 AND 500 ML 0.9% NACL FOR OVER 3 HOURS OF INTRAVENOUS INFUSION
     Route: 041
  5. DIPHENHYDRAMINE. [Concomitant]
     Active Substance: DIPHENHYDRAMINE
     Route: 030
  6. BEVACIZUMAB. [Suspect]
     Active Substance: BEVACIZUMAB
     Indication: OVARIAN CANCER RECURRENT
     Route: 041

REACTIONS (11)
  - Haemoglobin decreased [Unknown]
  - Gastric ulcer haemorrhage [Recovered/Resolved]
  - Gastrointestinal disorder [Unknown]
  - Off label use [Unknown]
  - Vomiting [Unknown]
  - Melaena [Unknown]
  - Intentional product use issue [Unknown]
  - Bone marrow failure [Unknown]
  - Nausea [Unknown]
  - White blood cell count decreased [Unknown]
  - Platelet count decreased [Unknown]
